FAERS Safety Report 8546596-X (Version None)
Quarter: 2012Q3

REPORT INFORMATION
  Report Type: 
  Country: None (occurrence: None)
  Receive Date: 20120727
  Receipt Date: 20111229
  Transmission Date: 20120928
  Serious: No
  Sender: FDA-Public Use
  Company Number: US-ASTRAZENECA-2011SE79018

PATIENT
  Age: 53 Year
  Sex: Female
  Weight: 106.6 kg

DRUGS (15)
  1. SEROQUEL XR [Suspect]
     Indication: BIPOLAR DISORDER
     Route: 048
     Dates: start: 19990101
  2. FISH OIL [Concomitant]
  3. OMEPRAZOLE [Concomitant]
  4. NORPOL [Concomitant]
  5. SIMVASTATIN [Concomitant]
  6. GLUSEPAGE [Concomitant]
  7. LISINOPRIL [Concomitant]
  8. METOPROLOL TARTRATE [Concomitant]
  9. BUSPAR [Concomitant]
  10. MEPLOZINE [Concomitant]
  11. ASPIRIN [Concomitant]
  12. VITAMIN D [Concomitant]
  13. PAXIL [Concomitant]
  14. NORVASC [Concomitant]
  15. LYRICA [Concomitant]

REACTIONS (4)
  - DRUG DOSE OMISSION [None]
  - DISTURBANCE IN ATTENTION [None]
  - NEGATIVE THOUGHTS [None]
  - INSOMNIA [None]
